FAERS Safety Report 16913139 (Version 2)
Quarter: 2019Q4

REPORT INFORMATION
  Report Type: Spontaneous
  Country: FR (occurrence: FR)
  Receive Date: 20191014
  Receipt Date: 20191016
  Transmission Date: 20200122
  Serious: Yes (Hospitalization)
  Sender: FDA-Public Use
  Company Number: FR-TEVA-2019-FR-1120146

PATIENT
  Age: 62 Year
  Sex: Male

DRUGS (12)
  1. ETOPOSIDE. [Interacting]
     Active Substance: ETOPOSIDE
     Indication: LUNG ADENOCARCINOMA
     Route: 042
     Dates: start: 20190424, end: 20190426
  2. SOLUPRED 20 MG, ORODISPERSIBLED TABLET [Concomitant]
     Dates: start: 20190424, end: 20190430
  3. FLUCONAZOLE. [Interacting]
     Active Substance: FLUCONAZOLE
     Indication: OESOPHAGEAL CANDIDIASIS
     Route: 048
     Dates: start: 20190426, end: 20190517
  4. APREPITANT. [Concomitant]
     Active Substance: APREPITANT
     Route: 048
     Dates: start: 20190424, end: 20190428
  5. CISPLATINE [Suspect]
     Active Substance: CISPLATIN
     Indication: LUNG ADENOCARCINOMA
     Dosage: 750 MILLIGRAME/M2
     Route: 042
     Dates: start: 20190424, end: 20190426
  6. JAMYLENE 50 MG, COATED TABLET [Concomitant]
  7. ZOPHREN 8 MG FILM-COATED TABLETS [Concomitant]
     Dates: start: 20190424, end: 20190429
  8. TRANXENE [Concomitant]
     Active Substance: CLORAZEPATE DIPOTASSIUM
     Route: 048
  9. DEROXAT [Concomitant]
     Active Substance: PAROXETINE HYDROCHLORIDE
     Route: 048
  10. IMOVANE [Concomitant]
     Active Substance: ZOPICLONE
     Route: 048
  11. BISOCE 2.5 MG FILM-COATED TABLETS [Concomitant]
  12. MODECATE [Concomitant]
     Active Substance: FLUPHENAZINE DECANOATE

REACTIONS (2)
  - Drug interaction [Unknown]
  - Pancytopenia [Recovered/Resolved]

NARRATIVE: CASE EVENT DATE: 20190504
